FAERS Safety Report 25377625 (Version 1)
Quarter: 2025Q2

REPORT INFORMATION
  Report Type: Spontaneous
  Country: US (occurrence: US)
  Receive Date: 20250530
  Receipt Date: 20250530
  Transmission Date: 20250717
  Serious: No
  Sender: ALEXION PHARMACEUTICALS
  Company Number: US-AstraZeneca-CH-00876860A

PATIENT
  Age: 70 Year

DRUGS (1)
  1. FARXIGA [Suspect]
     Active Substance: DAPAGLIFLOZIN PROPANEDIOL
     Indication: Peripheral vascular disorder
     Route: 065

REACTIONS (2)
  - Fungal infection [Recovered/Resolved]
  - Pruritus [Recovered/Resolved]
